FAERS Safety Report 7604517-8 (Version None)
Quarter: 2011Q3

REPORT INFORMATION
  Report Type: 
  Country: None (occurrence: None)
  Receive Date: 20110712
  Receipt Date: 20110627
  Transmission Date: 20111222
  Serious: No
  Sender: FDA-Public Use
  Company Number: US-B.I. PHARMACEUTICALS,INC./RIDGEFIELD-2011-BP-16396BP

PATIENT
  Sex: Male

DRUGS (5)
  1. ZETIA [Concomitant]
     Indication: BLOOD CHOLESTEROL INCREASED
  2. PRADAXA [Suspect]
     Indication: ATRIAL FIBRILLATION
     Dosage: 300 MG
     Route: 048
     Dates: start: 20110530
  3. LOSARTAN POTASSIUM [Concomitant]
     Indication: HYPERTENSION
  4. THYROID PILL [Concomitant]
     Indication: HYPOTHYROIDISM
  5. AMIODARONE HCL [Concomitant]
     Indication: ATRIAL FIBRILLATION

REACTIONS (2)
  - BLOOD PRESSURE DIASTOLIC DECREASED [None]
  - ROSACEA [None]
